FAERS Safety Report 12602015 (Version 7)
Quarter: 2018Q3

REPORT INFORMATION
  Report Type: Spontaneous
  Country: US (occurrence: US)
  Receive Date: 20160728
  Receipt Date: 20180720
  Transmission Date: 20181010
  Serious: Yes (Hospitalization, Other)
  Sender: FDA-Public Use
  Company Number: US-PFIZER INC-2016000551

PATIENT
  Age: 57 Year
  Sex: Male
  Weight: 61.22 kg

DRUGS (24)
  1. RAPAMUNE [Suspect]
     Active Substance: SIROLIMUS
     Indication: RENAL TRANSPLANT
     Dosage: 2 MG, DAILY
     Route: 048
  2. RAPAMUNE [Suspect]
     Active Substance: SIROLIMUS
     Dosage: 2 MG, 1X/DAY(2 TABLET ONCE A DAY)
     Route: 048
  3. PREDNISONE. [Concomitant]
     Active Substance: PREDNISONE
     Dosage: 5 MG, 2X/DAY
  4. SOTALOL AF [Concomitant]
     Indication: ATRIAL FIBRILLATION
  5. RAPAMUNE [Suspect]
     Active Substance: SIROLIMUS
     Dosage: 2 MG, 1X/DAY (2 TABLET 1 MG WHITE TRIANGULAR TABLETS ONCE A DAY)
     Dates: start: 2006
  6. SOTALOL AF [Concomitant]
     Indication: CARDIAC DISORDER
     Dosage: 80 MG, 1X/DAY
     Dates: start: 201612
  7. ASPIRIN. [Concomitant]
     Active Substance: ASPIRIN
     Dosage: 81 MG, UNK
     Route: 048
  8. BAYER ASPIRIN [Concomitant]
     Active Substance: ASPIRIN
     Indication: CARDIAC DISORDER
     Dosage: 81 MG, UNK
     Route: 048
  9. PREDNISONE. [Concomitant]
     Active Substance: PREDNISONE
     Indication: RENAL TRANSPLANT
     Dosage: 5 MG, 1X/DAY
     Route: 048
     Dates: start: 2003
  10. IBUPROFEN. [Concomitant]
     Active Substance: IBUPROFEN
     Indication: PAIN
     Dosage: 400 MG, 2X/DAY
  11. IBUPROFEN. [Concomitant]
     Active Substance: IBUPROFEN
     Indication: ARTHRALGIA
  12. FLOMAX [Concomitant]
     Active Substance: TAMSULOSIN HYDROCHLORIDE
     Dosage: 4 MG, UNK
  13. SOTALOL. [Concomitant]
     Active Substance: SOTALOL
     Dosage: 80 MG, UNK
     Route: 048
  14. RAPAMUNE [Suspect]
     Active Substance: SIROLIMUS
     Dosage: 2 MG, DAILY
     Route: 048
  15. RAPAMUNE [Suspect]
     Active Substance: SIROLIMUS
     Dosage: UNK
  16. RAPAMUNE [Suspect]
     Active Substance: SIROLIMUS
     Dosage: 2 MG, 1X/DAY, (2 MG A DAY/I TAKE TWO 1 MG PILLS ONCE A DAY)
     Route: 048
  17. CELLCEPT [Concomitant]
     Active Substance: MYCOPHENOLATE MOFETIL\MYCOPHENOLATE MOFETIL HYDROCHLORIDE
     Dosage: 500 MG, 2X/DAY
  18. MYCOPHENOLATE ACCORD [Concomitant]
     Active Substance: MYCOPHENOLIC ACID
     Dosage: UNK
  19. RAPAMUNE [Suspect]
     Active Substance: SIROLIMUS
     Dosage: UNK, (1 MG YESTERDAY AND TOOK ONE TODAY)
  20. CELLCEPT [Concomitant]
     Active Substance: MYCOPHENOLATE MOFETIL\MYCOPHENOLATE MOFETIL HYDROCHLORIDE
     Dosage: 500 MG, 2X/DAY
     Dates: start: 2003
  21. CELLCEPT [Concomitant]
     Active Substance: MYCOPHENOLATE MOFETIL\MYCOPHENOLATE MOFETIL HYDROCHLORIDE
     Indication: RENAL TRANSPLANT
     Dosage: 250 MG, 2X/DAY
     Route: 048
  22. PREDNISONE. [Concomitant]
     Active Substance: PREDNISONE
     Indication: RENAL DISORDER
     Dosage: 180 MG, UNK
  23. PREDNISONE. [Concomitant]
     Active Substance: PREDNISONE
     Dosage: 5 MG, 2X/DAY
     Route: 048
  24. NIFEDIPINE. [Concomitant]
     Active Substance: NIFEDIPINE
     Indication: BLOOD PRESSURE INADEQUATELY CONTROLLED
     Dosage: 30 MG, 1X/DAY
     Route: 048

REACTIONS (10)
  - Poor quality drug administered [Unknown]
  - Product physical issue [Unknown]
  - Intentional underdose [Unknown]
  - Intentional product misuse [Unknown]
  - Drug prescribing error [Unknown]
  - Atrial fibrillation [Unknown]
  - Product packaging issue [Unknown]
  - Loss of consciousness [Unknown]
  - Influenza [Unknown]
  - Nasopharyngitis [Unknown]

NARRATIVE: CASE EVENT DATE: 2016
